FAERS Safety Report 6217351-0 (Version None)
Quarter: 2009Q2

REPORT INFORMATION
  Report Type: 
  Country: None (occurrence: None)
  Receive Date: 20090608
  Receipt Date: 20080804
  Transmission Date: 20091009
  Serious: No
  Sender: FDA-Public Use
  Company Number: A0741119A

PATIENT
  Age: 51 Year
  Sex: Female

DRUGS (9)
  1. BUPROPION HYDROCHLORIDE [Suspect]
     Indication: DEPRESSION
     Dosage: 150MG TWICE PER DAY
     Route: 048
     Dates: end: 20080725
  2. BENICAR [Concomitant]
  3. COUMADIN [Concomitant]
  4. CLONAZEPAM [Concomitant]
  5. ZANAFLEX [Concomitant]
  6. XANAX [Concomitant]
  7. POTASSIUM CHLORIDE [Concomitant]
  8. LASIX [Concomitant]
  9. BOTOX INJECTIONS [Concomitant]

REACTIONS (5)
  - CRYING [None]
  - DRUG INEFFECTIVE [None]
  - JOINT SWELLING [None]
  - OEDEMA PERIPHERAL [None]
  - WEIGHT INCREASED [None]
